FAERS Safety Report 12568608 (Version 1)
Quarter: 2016Q3

REPORT INFORMATION
  Report Type: Spontaneous
  Country: US (occurrence: US)
  Receive Date: 20160719
  Receipt Date: 20160719
  Transmission Date: 20161109
  Serious: No
  Sender: FDA-Public Use
  Company Number: US-ASTRAZENECA-2016SE65676

PATIENT
  Age: 22378 Day
  Sex: Female
  Weight: 63.5 kg

DRUGS (1)
  1. PULMICORT FLEXHALER [Suspect]
     Active Substance: BUDESONIDE
     Dosage: 180 MCG, TWO INHALATIONS TWICE PER DAY
     Route: 055
     Dates: start: 20160603

REACTIONS (2)
  - Circumstance or information capable of leading to medication error [Unknown]
  - Dysphonia [Unknown]

NARRATIVE: CASE EVENT DATE: 20160603
